FAERS Safety Report 25395540 (Version 4)
Quarter: 2025Q4

REPORT INFORMATION
  Report Type: Spontaneous
  Country: US (occurrence: US)
  Receive Date: 20250604
  Receipt Date: 20251229
  Transmission Date: 20260117
  Serious: No
  Sender: BRISTOL-MYERS SQUIBB COMPANY
  Company Number: US-BRISTOL-MYERS SQUIBB COMPANY-2025-078933

PATIENT
  Age: 83 Year
  Sex: Female
  Weight: 75.3 kg

DRUGS (4)
  1. IDHIFA [Suspect]
     Active Substance: ENASIDENIB MESYLATE
     Indication: Myelodysplastic syndrome
     Route: 048
     Dates: start: 20250529
  2. IDHIFA [Suspect]
     Active Substance: ENASIDENIB MESYLATE
     Indication: Pancytopenia
     Dosage: 50MG 1 TABLET BY MOUTH WITH ALTERNATING WITH 100MG 2 TABLETS EVERY OTHER DAY
     Dates: start: 20250509
  3. IDHIFA [Suspect]
     Active Substance: ENASIDENIB MESYLATE
     Route: 048
     Dates: start: 20250529
  4. IDHIFA [Suspect]
     Active Substance: ENASIDENIB MESYLATE
     Route: 048
     Dates: start: 20250509

REACTIONS (8)
  - Nausea [Recovered/Resolved]
  - Asthenia [Recovered/Resolved]
  - Dizziness [Recovered/Resolved]
  - Fatigue [Recovered/Resolved]
  - Off label use [Unknown]
  - Cough [Unknown]
  - Lung disorder [Unknown]
  - Skin disorder [Unknown]
